FAERS Safety Report 4969112-8 (Version None)
Quarter: 2006Q2

REPORT INFORMATION
  Report Type: 
  Country: None (occurrence: None)
  Receive Date: 20060411
  Receipt Date: 20050303
  Transmission Date: 20061013
  Serious: Yes (Other)
  Sender: FDA-Public Use
  Company Number: US-BRISTOL-MYERS SQUIBB COMPANY-12884557

PATIENT
  Age: 49 Year
  Sex: Female
  Weight: 132 kg

DRUGS (4)
  1. CARBOPLATIN [Suspect]
     Indication: BREAST CANCER
     Dosage: 5TH DOSE ADMINISTERED ON 04-FEB-2005
     Route: 042
     Dates: start: 20050214, end: 20050214
  2. RADIATION THERAPY [Concomitant]
     Indication: BREAST CANCER
  3. DECADRON [Concomitant]
     Indication: PREMEDICATION
     Route: 042
     Dates: start: 20050214, end: 20050214
  4. ZOFRAN [Concomitant]
     Indication: PREMEDICATION
     Route: 048
     Dates: start: 20050214, end: 20050214

REACTIONS (1)
  - HYPERSENSITIVITY [None]
